FAERS Safety Report 11320589 (Version 1)
Quarter: 2015Q3

REPORT INFORMATION
  Report Type: Spontaneous
  Country: US (occurrence: None)
  Receive Date: 20150728
  Receipt Date: 20150728
  Transmission Date: 20151125
  Serious: Yes (Disabling, Other)
  Sender: FDA-Public Use
  Company Number: None

PATIENT
  Age: 34 Year
  Sex: Female

DRUGS (1)
  1. MIRENA [Suspect]
     Active Substance: LEVONORGESTREL
     Dates: start: 20120501, end: 20140501

REACTIONS (5)
  - Tinnitus [None]
  - Migraine [None]
  - Alopecia [None]
  - Capillaritis [None]
  - Benign intracranial hypertension [None]

NARRATIVE: CASE EVENT DATE: 20150701
